FAERS Safety Report 15233447 (Version 1)
Quarter: 2018Q3

REPORT INFORMATION
  Report Type: Spontaneous
  Country: US (occurrence: US)
  Receive Date: 20180709
  Receipt Date: 20180709
  Transmission Date: 20181010
  Serious: Yes (Hospitalization)
  Sender: FDA-Public Use
  Company Number: None

PATIENT
  Age: 53 Year
  Sex: Male
  Weight: 84.8 kg

DRUGS (13)
  1. CARBINOXAMINE MALEATE. [Concomitant]
     Active Substance: CARBINOXAMINE MALEATE
     Dates: start: 20000101
  2. LEXAPRO [Concomitant]
     Active Substance: ESCITALOPRAM OXALATE
     Dates: start: 19970101
  3. ZOFRAN (ONDANSETRON) [Concomitant]
     Dates: start: 20180618
  4. COMPAZINE [Concomitant]
     Active Substance: PROCHLORPERAZINE MALEATE
     Dates: start: 20180618
  5. VINCRISTINE [Concomitant]
     Active Substance: VINCRISTINE
     Dates: start: 20180618, end: 20180618
  6. CYTOXAN [Concomitant]
     Active Substance: CYCLOPHOSPHAMIDE
     Dates: start: 20180618, end: 20180618
  7. RITUXAN [Concomitant]
     Active Substance: RITUXIMAB
     Dates: start: 20180618, end: 20180618
  8. XANAX / APRAZOLAM [Concomitant]
     Dates: start: 19970101
  9. ROFLUMILAST. [Suspect]
     Active Substance: ROFLUMILAST
     Indication: DIFFUSE LARGE B-CELL LYMPHOMA
     Route: 048
     Dates: start: 20180618
  10. ZOCOR / SIMVISTATIN [Concomitant]
     Dates: start: 20140401
  11. LISINOPRIL. [Concomitant]
     Active Substance: LISINOPRIL
     Dates: start: 20140401
  12. ALLEGRA (FEXOFENADINE HCL) [Concomitant]
     Dates: start: 20000101
  13. PREDNISONE. [Concomitant]
     Active Substance: PREDNISONE
     Dates: start: 20180618, end: 20180626

REACTIONS (4)
  - Sepsis [None]
  - Bacteraemia [None]
  - Pyrexia [None]
  - Sinusitis [None]

NARRATIVE: CASE EVENT DATE: 20180701
